FAERS Safety Report 6781562-6 (Version None)
Quarter: 2010Q2

REPORT INFORMATION
  Report Type: 
  Country: None (occurrence: None)
  Receive Date: 20100621
  Receipt Date: 20100611
  Transmission Date: 20101027
  Serious: Yes (Other)
  Sender: FDA-Public Use
  Company Number: HQWYE358822JUL04

PATIENT
  Sex: Female

DRUGS (4)
  1. PREMARIN [Suspect]
  2. FEMHRT [Suspect]
  3. PROVERA [Suspect]
  4. PREMPRO [Suspect]

REACTIONS (5)
  - HYPERTENSION [None]
  - IDIOPATHIC THROMBOCYTOPENIC PURPURA [None]
  - RHEUMATOID ARTHRITIS [None]
  - SUPRAVENTRICULAR TACHYCARDIA [None]
  - THROMBOSIS [None]
